FAERS Safety Report 9818580 (Version 2)
Quarter: 2014Q1

REPORT INFORMATION
  Report Type: Report from Study
  Country: JP (occurrence: JP)
  Receive Date: 20140115
  Receipt Date: 20140127
  Transmission Date: 20141002
  Serious: Yes (Other)
  Sender: FDA-Public Use
  Company Number: JP-SA-2014SA004271

PATIENT
  Sex: 0

DRUGS (3)
  1. CLEXANE [Suspect]
     Indication: PRODUCT USED FOR UNKNOWN INDICATION
     Dosage: 21:00 ON POSTOPERATIVE DAY (POD) 1 DOSE:2000 UNIT(S)
     Route: 065
  2. CLEXANE [Suspect]
     Indication: PRODUCT USED FOR UNKNOWN INDICATION
     Dosage: AT, 11:00 FROM POSTOPERATIVE DAYS (PODS) 2-7 DOSE:2000 UNIT(S)
     Route: 065
  3. CLEXANE [Suspect]
     Indication: PRODUCT USED FOR UNKNOWN INDICATION
     Dosage: AT, 21:00 FROM POSTOPERATIVE DAYS (PODS) 2-7 DOSE:2000 UNIT(S)
     Route: 065

REACTIONS (1)
  - Transient ischaemic attack [Recovered/Resolved]
